FAERS Safety Report 7731862-8 (Version None)
Quarter: 2011Q3

REPORT INFORMATION
  Report Type: 
  Country: None (occurrence: None)
  Receive Date: 20110906
  Receipt Date: 20110831
  Transmission Date: 20111222
  Serious: Yes (Other)
  Sender: FDA-Public Use
  Company Number: US-PFIZER INC-2008048415

PATIENT
  Sex: Female
  Weight: 92.063 kg

DRUGS (18)
  1. CYCLOBENZAPRINE [Concomitant]
     Indication: MUSCLE SPASMS
     Dosage: 10 MG, AS NEEDED
     Route: 048
  2. ACETAMINOPHEN AND HYDROCODONE BITARTRATE [Concomitant]
     Indication: HEADACHE
     Dosage: 5/500 MG, 2X/DAY
     Route: 048
  3. ACETAMINOPHEN AND HYDROCODONE BITARTRATE [Concomitant]
     Indication: SINUS DISORDER
  4. IMITREX [Concomitant]
     Indication: MIGRAINE
     Dosage: 50 MG, AS NEEDED
     Route: 048
  5. LYRICA [Suspect]
  6. NORTRIPTYLINE HCL [Concomitant]
     Indication: DEPRESSION
     Dosage: 150 MG, 1X/DAY
     Route: 048
  7. NORTRIPTYLINE HCL [Concomitant]
     Indication: FIBROMYALGIA
  8. LISINOPRIL [Concomitant]
     Indication: HYPERTENSION
     Dosage: 10 MG, 1X/DAY
     Route: 048
  9. HYDROCHLOROTHIAZIDE [Concomitant]
     Indication: FLUID RETENTION
     Dosage: 25 MG, 1X/DAY
     Route: 048
  10. ACETAMINOPHEN AND HYDROCODONE BITARTRATE [Concomitant]
     Indication: BACK PAIN
  11. NEURONTIN [Suspect]
     Indication: OCCIPITAL NEURALGIA
     Dosage: 600 MG, 3X/DAY
     Route: 048
     Dates: start: 20060101, end: 20110301
  12. NEURONTIN [Suspect]
     Indication: FIBROMYALGIA
  13. CYCLOBENZAPRINE [Concomitant]
     Indication: MUSCLE RELAXANT THERAPY
  14. METFORMIN [Concomitant]
     Indication: DIABETES MELLITUS
     Dosage: 500 MG, 2X/DAY
     Route: 048
  15. ATENOLOL [Concomitant]
     Indication: HYPERTENSION
     Dosage: 100 MG, 1X/DAY
     Route: 048
  16. DAYPRO [Suspect]
     Indication: ARTHRITIS
     Dosage: 600 MG, 2X/DAY
     Route: 048
  17. NEURONTIN [Suspect]
     Indication: MIGRAINE
  18. LIPITOR [Suspect]
     Dosage: 10 MG, 1X/DAY
     Route: 048

REACTIONS (2)
  - HYPERTENSION [None]
  - MOOD SWINGS [None]
